FAERS Safety Report 15924441 (Version 1)
Quarter: 2019Q1

REPORT INFORMATION
  Report Type: Spontaneous
  Country: DE (occurrence: DE)
  Receive Date: 20190206
  Receipt Date: 20190206
  Transmission Date: 20190417
  Serious: Yes (Other)
  Sender: FDA-Public Use
  Company Number: DE-ROCHE-2255602

PATIENT
  Age: 61 Year
  Sex: Female

DRUGS (3)
  1. AVASTIN [Suspect]
     Active Substance: BEVACIZUMAB
     Indication: NEOPLASM MALIGNANT
     Route: 065
  2. IBRANCE [Suspect]
     Active Substance: PALBOCICLIB
     Indication: PRODUCT USED FOR UNKNOWN INDICATION
     Route: 065
  3. LETROZOL [Concomitant]
     Active Substance: LETROZOLE

REACTIONS (6)
  - Metastases to abdominal cavity [Unknown]
  - Vertigo [Unknown]
  - Metastases to pleura [Unknown]
  - Visual impairment [Unknown]
  - Recurrent cancer [Unknown]
  - Metastases to lung [Unknown]
